FAERS Safety Report 7862129-5 (Version None)
Quarter: 2011Q4

REPORT INFORMATION
  Report Type: 
  Country: None (occurrence: None)
  Receive Date: 20111027
  Receipt Date: 20101102
  Transmission Date: 20120403
  Serious: No
  Sender: FDA-Public Use
  Company Number: US-AMGEN-KDL441109

PATIENT
  Age: 71 Year
  Sex: Female
  Weight: 52.154 kg

DRUGS (6)
  1. HYDROCHLOROTHIAZIDE [Concomitant]
     Dosage: 25 MG, QD
     Route: 048
  2. ENBREL [Suspect]
     Indication: RHEUMATOID ARTHRITIS
     Dosage: 50 MG, QWK
     Route: 058
     Dates: start: 20070801
  3. ZOCOR [Concomitant]
     Dosage: 20 MG, QD
     Route: 048
  4. LIORESAL [Concomitant]
     Dosage: 10 MG, QHS
     Route: 048
     Dates: start: 20101009
  5. VERAPAMIL [Concomitant]
     Dosage: 240 MG, UNK
     Route: 048
  6. LISINOPRIL [Concomitant]
     Dosage: 40 MG, QD
     Route: 048

REACTIONS (4)
  - HYPOAESTHESIA [None]
  - SENSORY DISTURBANCE [None]
  - BACK PAIN [None]
  - PAIN IN EXTREMITY [None]
